FAERS Safety Report 9359841 (Version 2)
Quarter: 2013Q3

REPORT INFORMATION
  Report Type: Spontaneous
  Country: FR (occurrence: FR)
  Receive Date: 20130621
  Receipt Date: 20130911
  Transmission Date: 20140515
  Serious: Yes (Hospitalization)
  Sender: FDA-Public Use
  Company Number: FR-009507513-1306FRA005789

PATIENT
  Age: 64 Year
  Sex: Male

DRUGS (3)
  1. ESMERON [Suspect]
     Indication: INDUCTION OF ANAESTHESIA
     Dosage: 50 MG, ONCE
     Route: 051
     Dates: start: 20130207, end: 20130207
  2. PROPOFOL LIPURO [Suspect]
     Indication: INDUCTION OF ANAESTHESIA
     Dosage: 300 MG, ONCE
     Route: 051
     Dates: start: 20130207, end: 20130207
  3. SUFENTANIL [Suspect]
     Indication: INDUCTION OF ANAESTHESIA
     Dosage: 35 MICROGRAM, ONCE
     Route: 051
     Dates: start: 20130207, end: 20130207

REACTIONS (2)
  - Anaphylactic reaction [Recovered/Resolved]
  - Angioedema [Recovered/Resolved]
